FAERS Safety Report 15213044 (Version 2)
Quarter: 2020Q2

REPORT INFORMATION
  Report Type: Report from Study
  Country: US (occurrence: US)
  Receive Date: 20180730
  Receipt Date: 20200506
  Transmission Date: 20200713
  Serious: Yes (Other)
  Sender: FDA-Public Use
  Company Number: US-ROCHE-2159893

PATIENT
  Age: 32 Year
  Sex: Female

DRUGS (6)
  1. OCREVUS [Suspect]
     Active Substance: OCRELIZUMAB
     Indication: MULTIPLE SCLEROSIS
     Route: 042
     Dates: start: 20180516
  2. VITAMIN D3 [Concomitant]
     Active Substance: CHOLECALCIFEROL
  3. OCREVUS [Suspect]
     Active Substance: OCRELIZUMAB
     Dosage: DATE OF TREATMENT: 28/NOV/2018, 28/MAY/2019, 19/NOV/2019
     Route: 042
     Dates: start: 20180531
  4. ZINC. [Concomitant]
     Active Substance: ZINC
  5. OCREVUS [Suspect]
     Active Substance: OCRELIZUMAB
     Indication: RELAPSING MULTIPLE SCLEROSIS
     Route: 042
     Dates: start: 20180507
  6. SUPER B COMPLEX [VITAMIN B COMPLEX] [Concomitant]

REACTIONS (10)
  - Weight increased [Recovered/Resolved]
  - Trichorrhexis [Not Recovered/Not Resolved]
  - Fatigue [Not Recovered/Not Resolved]
  - Nasopharyngitis [Not Recovered/Not Resolved]
  - Vertigo [Not Recovered/Not Resolved]
  - Optic neuritis [Recovered/Resolved]
  - Nausea [Recovered/Resolved]
  - Hemiparesis [Recovered/Resolved]
  - Alopecia [Recovered/Resolved]
  - Upper respiratory tract congestion [Not Recovered/Not Resolved]

NARRATIVE: CASE EVENT DATE: 201807
